FAERS Safety Report 17020493 (Version 1)
Quarter: 2019Q4

REPORT INFORMATION
  Report Type: Spontaneous
  Country: PT (occurrence: PT)
  Receive Date: 20191112
  Receipt Date: 20191112
  Transmission Date: 20200122
  Serious: Yes (Other)
  Sender: FDA-Public Use
  Company Number: NVSC2019PT030660

PATIENT
  Age: 38 Year
  Sex: Female

DRUGS (8)
  1. CAPECITABINE. [Suspect]
     Active Substance: CAPECITABINE
     Indication: INVASIVE BREAST CARCINOMA
     Dosage: 1200 MG/M2, BID (14 DAYS IN 21 DAY CYCLES; RECEIVED 12 CYCLES, 4 WITH MAXIUM DOSE AND THE REMAINING
     Route: 065
     Dates: start: 20151026, end: 20160722
  2. ZOLEDRONIC ACID [Suspect]
     Active Substance: ZOLEDRONIC ACID
     Dosage: UNK
     Route: 065
     Dates: start: 20151026, end: 20160722
  3. ZOLEDRONIC ACID [Suspect]
     Active Substance: ZOLEDRONIC ACID
     Dosage: UNK
     Route: 065
     Dates: start: 20160808, end: 20170919
  4. LETROZOLE. [Suspect]
     Active Substance: LETROZOLE
     Indication: INVASIVE BREAST CARCINOMA
     Dosage: 2.5 MG, QD
     Route: 065
     Dates: start: 20150624
  5. LETROZOLE. [Suspect]
     Active Substance: LETROZOLE
     Dosage: 2.5 MG, QD
     Route: 065
     Dates: start: 20160808, end: 20170919
  6. ZOLEDRONIC ACID [Suspect]
     Active Substance: ZOLEDRONIC ACID
     Indication: INVASIVE BREAST CARCINOMA
     Dosage: UNK
     Route: 065
     Dates: start: 20150803, end: 20151019
  7. PACLITAXEL. [Suspect]
     Active Substance: PACLITAXEL
     Indication: INVASIVE BREAST CARCINOMA
     Dosage: 80 MG/M2, QW (12 CYCLES)
     Route: 065
     Dates: start: 20150803, end: 20151019
  8. BISOPROLOL [Concomitant]
     Active Substance: BISOPROLOL
     Indication: ARRHYTHMIA
     Route: 065

REACTIONS (7)
  - Hepatic lesion [Unknown]
  - Metastases to bone [Unknown]
  - Onycholysis [Unknown]
  - Metastases to liver [Unknown]
  - Palmar-plantar erythrodysaesthesia syndrome [Unknown]
  - Cholecystitis acute [Unknown]
  - Metastases to lung [Unknown]

NARRATIVE: CASE EVENT DATE: 20150729
